FAERS Safety Report 8200744-X (Version None)
Quarter: 2012Q1

REPORT INFORMATION
  Report Type: 
  Country: None (occurrence: None)
  Receive Date: 20120312
  Receipt Date: 20120302
  Transmission Date: 20120608
  Serious: Yes (Hospitalization)
  Sender: FDA-Public Use
  Company Number: KR-SANOFI-AVENTIS-2012SA006285

PATIENT
  Age: 68 Year
  Sex: Female

DRUGS (3)
  1. LANTUS [Suspect]
     Dosage: DOSE:32 UNIT(S)
     Route: 058
     Dates: start: 20120129
  2. LANTUS [Suspect]
     Indication: DIABETES MELLITUS
     Dosage: DOSE:32 UNIT(S)
     Route: 058
     Dates: start: 20111201, end: 20120127
  3. LANTUS [Suspect]
     Dosage: DOSE:36 UNIT(S)
     Route: 058

REACTIONS (1)
  - LOWER LIMB FRACTURE [None]
